FAERS Safety Report 17045945 (Version 1)
Quarter: 2019Q4

REPORT INFORMATION
  Report Type: Spontaneous
  Country: US (occurrence: US)
  Receive Date: 20191119
  Receipt Date: 20191119
  Transmission Date: 20200122
  Serious: No
  Sender: FDA-Public Use
  Company Number: US-LUPIN PHARMACEUTICALS INC.-2019-02230

PATIENT
  Sex: Female
  Weight: 78.91 kg

DRUGS (1)
  1. LISINOPRIL AND HYDROCHLOROTHIAZIDE [Suspect]
     Active Substance: HYDROCHLOROTHIAZIDE\LISINOPRIL
     Indication: HYPERTENSION
     Dosage: UNK UNK, QD
     Route: 048

REACTIONS (5)
  - Diarrhoea [Recovered/Resolved]
  - Hyperhidrosis [Unknown]
  - Malaise [Unknown]
  - Asthenia [Recovered/Resolved]
  - Nausea [Recovered/Resolved]
